FAERS Safety Report 20097705 (Version 1)
Quarter: 2021Q4

REPORT INFORMATION
  Report Type: Spontaneous
  Country: US (occurrence: US)
  Receive Date: 20211122
  Receipt Date: 20211122
  Transmission Date: 20220303
  Serious: Yes (Other)
  Sender: FDA-Public Use
  Company Number: US-ANIPHARMA-2021-US-006827

PATIENT
  Age: 86 Year
  Sex: Female
  Weight: 86.18 kg

DRUGS (3)
  1. FLECAINIDE ACETATE [Suspect]
     Active Substance: FLECAINIDE ACETATE
     Indication: Cardiac stress test
     Dosage: 1 TABLET
     Route: 048
     Dates: start: 20210301, end: 20210301
  2. LISINOPRIL [Concomitant]
     Active Substance: LISINOPRIL
  3. Lovstatin [Concomitant]

REACTIONS (8)
  - Liver function test abnormal [Recovered/Resolved]
  - Urticaria [Recovered/Resolved]
  - Pruritus [Recovering/Resolving]
  - Skin burning sensation [Recovered/Resolved]
  - Skin discolouration [Recovering/Resolving]
  - Skin exfoliation [Recovering/Resolving]
  - Rash [Recovered/Resolved]
  - Drug hypersensitivity [Recovered/Resolved]

NARRATIVE: CASE EVENT DATE: 20210301
